FAERS Safety Report 16798279 (Version 2)
Quarter: 2020Q3

REPORT INFORMATION
  Report Type: Spontaneous
  Country: US (occurrence: US)
  Receive Date: 20190912
  Receipt Date: 20200827
  Transmission Date: 20201102
  Serious: Yes (Other)
  Sender: FDA-Public Use
  Company Number: US-SUN PHARMACEUTICAL INDUSTRIES LTD-2019R1-219920

PATIENT
  Sex: Male

DRUGS (2)
  1. IVIG [Suspect]
     Active Substance: HUMAN IMMUNOGLOBULIN G
     Indication: NEONATAL ALLOIMMUNE THROMBOCYTOPENIA
     Dosage: 2 GRAM/KILOGRAM/ TWICE WEEKLY
     Route: 064
  2. PREDNISONE. [Suspect]
     Active Substance: PREDNISONE
     Indication: NEONATAL ALLOIMMUNE THROMBOCYTOPENIA
     Dosage: UNK
     Route: 064

REACTIONS (2)
  - Vena cava thrombosis [Recovered/Resolved]
  - Foetal exposure during pregnancy [Unknown]
